FAERS Safety Report 15809420 (Version 2)
Quarter: 2019Q1

REPORT INFORMATION
  Report Type: Spontaneous
  Country: US (occurrence: US)
  Receive Date: 20190111
  Receipt Date: 20190206
  Transmission Date: 20190417
  Serious: No
  Sender: FDA-Public Use
  Company Number: US-ALEXION PHARMACEUTICALS INC.-A201900060

PATIENT
  Age: 29 Year
  Sex: Female
  Weight: 102.4 kg

DRUGS (1)
  1. KANUMA [Suspect]
     Active Substance: SEBELIPASE ALFA
     Indication: LYSOSOMAL ACID LIPASE DEFICIENCY
     Dosage: 88 MG, UNK
     Route: 065

REACTIONS (4)
  - Hypoaesthesia oral [Unknown]
  - Hypersensitivity [Unknown]
  - Hypoaesthesia [Unknown]
  - Throat clearing [Unknown]

NARRATIVE: CASE EVENT DATE: 20181227
